FAERS Safety Report 7057392-7 (Version None)
Quarter: 2010Q4

REPORT INFORMATION
  Report Type: 
  Country: None (occurrence: None)
  Receive Date: 20101022
  Receipt Date: 20101014
  Transmission Date: 20110411
  Serious: Yes (Other)
  Sender: FDA-Public Use
  Company Number: US-JNJFOC-20100700469

PATIENT
  Sex: Male
  Weight: 107.5 kg

DRUGS (1)
  1. LEVAQUIN [Suspect]
     Indication: DIVERTICULITIS
     Route: 048

REACTIONS (4)
  - MUSCLE RUPTURE [None]
  - POST-TRAUMATIC STRESS DISORDER [None]
  - TENDON RUPTURE [None]
  - TENDONITIS [None]
